FAERS Safety Report 7314090-X (Version None)
Quarter: 2011Q1

REPORT INFORMATION
  Report Type: 
  Country: None (occurrence: None)
  Receive Date: 20110225
  Receipt Date: 20100429
  Transmission Date: 20110831
  Serious: No
  Sender: FDA-Public Use
  Company Number: US-MYLANLABS-2010S1007533

PATIENT
  Age: 18 Year
  Sex: Male

DRUGS (2)
  1. AMNESTEEM [Suspect]
     Indication: ACNE CYSTIC
     Route: 048
     Dates: start: 20100401, end: 20100401
  2. NASAL /06166901/ [Concomitant]
     Indication: SINUS DISORDER
     Dosage: OTC NASAL SPRAY
     Route: 045

REACTIONS (2)
  - EPISTAXIS [None]
  - DEPRESSION [None]
